FAERS Safety Report 8314572-8 (Version None)
Quarter: 2012Q2

REPORT INFORMATION
  Report Type: 
  Country: None (occurrence: None)
  Receive Date: 20120426
  Receipt Date: 20120419
  Transmission Date: 20120825
  Serious: Yes (Hospitalization)
  Sender: FDA-Public Use
  Company Number: AU-ROCHE-1061819

PATIENT
  Age: 50 Year
  Sex: Male

DRUGS (3)
  1. PEGINTERFERON ALFA-2A [Suspect]
     Indication: PRODUCT USED FOR UNKNOWN INDICATION
  2. PLACEBO [Concomitant]
  3. RIBAVIRIN [Concomitant]

REACTIONS (3)
  - IRRITABILITY [None]
  - ANGER [None]
  - AGGRESSION [None]
